FAERS Safety Report 6084567-6 (Version None)
Quarter: 2009Q1

REPORT INFORMATION
  Report Type: 
  Country: None (occurrence: None)
  Receive Date: 20090204
  Receipt Date: 20080523
  Transmission Date: 20090719
  Serious: Yes (Life-Threatening)
  Sender: FDA-Public Use
  Company Number: 275566

PATIENT
  Sex: Female

DRUGS (3)
  1. NOVOLOG [Suspect]
     Indication: TYPE 1 DIABETES MELLITUS
     Dosage: 2-10 UNITS WITH MEALS, SUBCUTANEOUS
     Route: 058
     Dates: start: 20060101
  2. LANTUS [Concomitant]
  3. CALCIUM (CALCIUM) [Concomitant]

REACTIONS (2)
  - BLOOD GLUCOSE FLUCTUATION [None]
  - HYPOGLYCAEMIC UNCONSCIOUSNESS [None]
